FAERS Safety Report 6975770-9 (Version None)
Quarter: 2010Q3

REPORT INFORMATION
  Report Type: 
  Country: None (occurrence: None)
  Receive Date: 20100910
  Receipt Date: 20100827
  Transmission Date: 20110219
  Serious: Yes (Life-Threatening, Hospitalization, Other)
  Sender: FDA-Public Use
  Company Number: GB-RANBAXY-2010RR-34563

PATIENT
  Age: 59 Year
  Sex: Male

DRUGS (20)
  1. SIMVASTATIN [Suspect]
     Dosage: 20 MG, QD
     Route: 048
  2. FUCIDINE CAP [Suspect]
     Indication: ARTHRITIS BACTERIAL
     Dosage: 500 MG, TID
     Route: 065
  3. FUCIDINE CAP [Suspect]
     Indication: OSTEOMYELITIS
  4. CLARITHROMYCIN [Concomitant]
     Dosage: 250 MG, BID
     Route: 065
  5. GLICLAZIDE [Concomitant]
     Indication: DIABETES MELLITUS
     Dosage: 80 MG, BID
     Route: 065
  6. CEFTRIAXONE [Concomitant]
     Dosage: 1 G, UNK
  7. FLUCLOXACILLIN [Concomitant]
     Indication: OSTEOMYELITIS
     Dosage: 500 MG, QID
  8. FLUCLOXACILLIN [Concomitant]
     Indication: ARTHRITIS BACTERIAL
  9. LANSOPRAZOLE [Concomitant]
     Dosage: 30 MG, UNK
  10. ALLOPURINOL [Concomitant]
     Dosage: 100 MG, UNK
  11. ATENOLOL [Concomitant]
     Dosage: 50 MG, UNK
  12. CLOPIDOGREL [Concomitant]
     Dosage: 75 MG, UNK
  13. DIPYRIDAMOLE [Concomitant]
     Dosage: 200 MG, BID
  14. CALCICHEW [Concomitant]
     Dosage: UNK
  15. ALFACALCIDOL [Concomitant]
     Dosage: 1 UG, UNK
  16. FOLIC ACID [Concomitant]
     Dosage: 5 MG, UNK
  17. OROVITE [Concomitant]
     Dosage: UNK
  18. ERYTHROPOIETINE B [Concomitant]
     Dosage: 3000 UNK, UNK
  19. IRON SUCROSE [Concomitant]
     Dosage: 50 MG, 1/WEEK
  20. GENTAMICIN [Concomitant]

REACTIONS (2)
  - DRUG INTERACTION [None]
  - RHABDOMYOLYSIS [None]
